FAERS Safety Report 8324910-8 (Version None)
Quarter: 2012Q2

REPORT INFORMATION
  Report Type: 
  Country: None (occurrence: None)
  Receive Date: 20120501
  Receipt Date: 20120430
  Transmission Date: 20120825
  Serious: Yes (Death, Other)
  Sender: FDA-Public Use
  Company Number: NZ-PFIZER INC-2012097673

PATIENT
  Sex: Female

DRUGS (1)
  1. VARENICLINE TARTRATE [Suspect]
     Dosage: UNK

REACTIONS (7)
  - BRAIN NEOPLASM MALIGNANT [None]
  - DEATH [None]
  - CRYING [None]
  - MOOD SWINGS [None]
  - ANGER [None]
  - PERSONALITY CHANGE [None]
  - MOOD ALTERED [None]
